FAERS Safety Report 8970059 (Version 1)
Quarter: 2012Q4

REPORT INFORMATION
  Report Type: 
  Country: US (occurrence: US)
  Receive Date: 20121218
  Receipt Date: 20121218
  Transmission Date: 20130627
  Serious: No
  Sender: FDA-Public Use
  Company Number: US-ABBOTT-12P-163-0920303-00

PATIENT
  Age: 56 None
  Sex: Female
  Weight: 50.85 kg

DRUGS (3)
  1. PROMETRIUM [Suspect]
     Indication: HORMONE REPLACEMENT THERAPY
     Dosage: One daily for 12 days monthly
     Route: 048
     Dates: start: 2005
  2. SYNTHROID [Concomitant]
     Indication: HYPOTHYROIDISM
  3. CRINONE GEL [Concomitant]
     Indication: HORMONE REPLACEMENT THERAPY
     Route: 067

REACTIONS (4)
  - Abnormal dreams [Recovered/Resolved]
  - Headache [Recovered/Resolved]
  - Headache [Recovered/Resolved]
  - Malaise [Recovered/Resolved]
